FAERS Safety Report 5636083-0 (Version None)
Quarter: 2008Q1

REPORT INFORMATION
  Report Type: 
  Country: None (occurrence: None)
  Receive Date: 20080220
  Receipt Date: 20080220
  Transmission Date: 20080703
  Serious: Yes (Other)
  Sender: FDA-Public Use
  Company Number: None

PATIENT
  Age: 64 Year
  Sex: Female
  Weight: 52.1637 kg

DRUGS (3)
  1. LIDOCAINE OINTMENT [Suspect]
     Indication: ANAESTHESIA
  2. LIDOCAINE OINTMENT [Suspect]
     Indication: TOOTH REPAIR
  3. MEPIVACAINE NOVOCOL PHARMACEUTICAL OF [Suspect]

REACTIONS (4)
  - CONTUSION [None]
  - DRUG HYPERSENSITIVITY [None]
  - INFECTION [None]
  - SWELLING FACE [None]
